FAERS Safety Report 8861424 (Version 1)
Quarter: 2012Q4

REPORT INFORMATION
  Report Type: 
  Country: US (occurrence: US)
  Receive Date: 20121025
  Receipt Date: 20121025
  Transmission Date: 20130627
  Serious: No
  Sender: FDA-Public Use
  Company Number: US-AMGEN-USASP2012013317

PATIENT
  Age: 62 Year
  Sex: Female

DRUGS (11)
  1. ENBREL [Suspect]
     Indication: PRODUCT USED FOR UNKNOWN INDICATION
     Dosage: 50 mg, qwk
     Route: 058
  2. METHOTREXATE [Concomitant]
     Dosage: 2.5 mg, UNK
  3. SYNTHROID [Concomitant]
     Dosage: UNK
  4. ALENDRONATE [Concomitant]
     Dosage: 10 mg, UNK
  5. SALINE                             /00075401/ [Concomitant]
     Dosage: UNK
  6. ASPIRIN [Concomitant]
     Dosage: 325 mg, UNK
  7. POTASSIUM [Concomitant]
     Dosage: 75 mg, UNK
  8. FLAXSEED OIL [Concomitant]
     Dosage: 1000 mg, UNK
  9. JOINTFLEX                          /01758701/ [Concomitant]
     Dosage: UNK
  10. ALOE VERA [Concomitant]
     Dosage: UNK
  11. CALCIUM MAGNESIUM ZINC [Concomitant]
     Dosage: UNK

REACTIONS (1)
  - Dizziness [Unknown]
